FAERS Safety Report 6173444-8 (Version None)
Quarter: 2009Q2

REPORT INFORMATION
  Report Type: 
  Country: None (occurrence: None)
  Receive Date: 20090429
  Receipt Date: 20090429
  Transmission Date: 20091009
  Serious: Yes (Hospitalization)
  Sender: FDA-Public Use
  Company Number: None

PATIENT
  Sex: Male
  Weight: 87.9 kg

DRUGS (4)
  1. CYCLOPHOSPHAMIDE [Suspect]
     Dosage: 2010 MG
  2. CYTARABINE [Suspect]
     Dosage: 1205 MG
  3. DOXORUBICIN HCL [Suspect]
     Dosage: 157 MG
  4. METHOTREXATE [Suspect]
     Dosage: 45 MG

REACTIONS (2)
  - NAUSEA [None]
  - PLATELET COUNT DECREASED [None]
